FAERS Safety Report 8622281-0 (Version None)
Quarter: 2012Q3

REPORT INFORMATION
  Report Type: 
  Country: None (occurrence: None)
  Receive Date: 20120827
  Receipt Date: 20120816
  Transmission Date: 20120928
  Serious: Yes (Hospitalization, Disabling)
  Sender: FDA-Public Use
  Company Number: DE-BIOGENIDEC-2012BI016879

PATIENT
  Age: 45 Year
  Sex: Female
  Weight: 78 kg

DRUGS (14)
  1. TYSABRI [Suspect]
     Indication: SECONDARY PROGRESSIVE MULTIPLE SCLEROSIS
     Route: 042
     Dates: start: 20080101, end: 20120519
  2. ZOLOFT [Concomitant]
     Indication: DEPRESSION
     Route: 048
  3. OXAZEPAM [Concomitant]
     Route: 048
  4. ZOPICLON [Concomitant]
     Indication: PRODUCT USED FOR UNKNOWN INDICATION
  5. OXAZEPAM [Concomitant]
     Indication: DEPRESSION
     Route: 048
  6. SERTRALINE HYDROCHLORIDE [Concomitant]
     Indication: ANXIETY
     Route: 048
  7. METOPROLOL TARTRATE [Concomitant]
     Indication: PRODUCT USED FOR UNKNOWN INDICATION
  8. SERTRALINE HYDROCHLORIDE [Concomitant]
     Indication: DEPRESSION
     Route: 048
  9. OXAZEPAM [Concomitant]
     Route: 048
  10. ASPIRIN [Concomitant]
     Indication: DEPRESSION
     Route: 048
  11. EMSELEX [Concomitant]
     Indication: PRODUCT USED FOR UNKNOWN INDICATION
  12. OXAZEPAM [Concomitant]
     Indication: ANXIETY
     Route: 048
  13. ASPIRIN [Concomitant]
     Indication: ANXIETY
     Route: 048
  14. NEXIUM [Concomitant]
     Indication: PROPHYLAXIS
     Dates: start: 20120508

REACTIONS (4)
  - IMMUNE RECONSTITUTION SYNDROME [None]
  - URINARY TRACT INFECTION [None]
  - PNEUMONIA [None]
  - PROGRESSIVE MULTIFOCAL LEUKOENCEPHALOPATHY [None]
